FAERS Safety Report 6712986-0 (Version None)
Quarter: 2010Q2

REPORT INFORMATION
  Report Type: 
  Country: None (occurrence: None)
  Receive Date: 20100505
  Receipt Date: 20100505
  Transmission Date: 20101027
  Serious: Yes (Other)
  Sender: FDA-Public Use
  Company Number: None

PATIENT
  Age: 54 Year
  Sex: Male
  Weight: 72 kg

DRUGS (11)
  1. KETAMINE HCL [Suspect]
     Indication: CANCER PAIN
     Dosage: 25 - 50MG Q 2 HOURS PO
     Route: 048
     Dates: start: 20100218, end: 20100223
  2. KETAMINE HCL [Suspect]
     Indication: DRUG RESISTANCE
     Dosage: 25 - 50MG Q 2 HOURS PO
     Route: 048
     Dates: start: 20100218, end: 20100223
  3. KETAMINE HCL [Suspect]
     Indication: CANCER PAIN
     Dosage: 75 MG Q 2 HOURS PO
     Route: 048
     Dates: start: 20100223, end: 20100224
  4. KETAMINE HCL [Suspect]
     Indication: DRUG RESISTANCE
     Dosage: 75 MG Q 2 HOURS PO
     Route: 048
     Dates: start: 20100223, end: 20100224
  5. FENTANYL [Concomitant]
  6. KADIAN [Concomitant]
  7. FENTANYL/BUPIVICAINE EPIDURAL [Concomitant]
  8. GABAPENTIN [Concomitant]
  9. ENOXAPARIN SODIUM [Concomitant]
  10. L-HYOSCYAMINE [Concomitant]
  11. PANTOPRAZOLE [Concomitant]

REACTIONS (7)
  - DELIRIUM [None]
  - HALLUCINATION [None]
  - MOOD ALTERED [None]
  - PARANOIA [None]
  - SKIN LACERATION [None]
  - SUICIDE ATTEMPT [None]
  - THINKING ABNORMAL [None]
